FAERS Safety Report 7644287-0 (Version None)
Quarter: 2011Q3

REPORT INFORMATION
  Report Type: 
  Country: None (occurrence: None)
  Receive Date: 20110728
  Receipt Date: 20110728
  Transmission Date: 20111222
  Serious: No
  Sender: FDA-Public Use
  Company Number: None

PATIENT
  Sex: Male
  Weight: 135.1719 kg

DRUGS (3)
  1. PREVACID [Suspect]
     Indication: OESOPHAGITIS
     Dosage: 1 QD PO
     Route: 048
     Dates: start: 19980101, end: 20060101
  2. PRILOSEC [Suspect]
     Indication: HYPERPLASIA
     Dosage: 1 QD PO
     Route: 048
     Dates: start: 20060101, end: 20080101
  3. PRILOSEC [Suspect]
     Indication: GASTRIC POLYPS
     Dosage: 1 QD PO
     Route: 048
     Dates: start: 20060101, end: 20080101

REACTIONS (4)
  - CONDITION AGGRAVATED [None]
  - DRUG INEFFECTIVE [None]
  - GASTRIC POLYPS [None]
  - GASTROOESOPHAGEAL REFLUX DISEASE [None]
